FAERS Safety Report 4489970-3 (Version None)
Quarter: 2004Q4

REPORT INFORMATION
  Report Type: 
  Country: None (occurrence: None)
  Receive Date: 20041101
  Receipt Date: 20041021
  Transmission Date: 20050328
  Serious: Yes (Hospitalization)
  Sender: FDA-Public Use
  Company Number: PHFR2004GB03786

PATIENT
  Age: 15 Year
  Sex: Female

DRUGS (2)
  1. LITHIUM [Suspect]
     Route: 065
  2. CLOZARIL [Suspect]
     Indication: SCHIZOPHRENIA
     Route: 048
     Dates: start: 20040722

REACTIONS (2)
  - RED BLOOD CELL SEDIMENTATION RATE INCREASED [None]
  - THERAPEUTIC AGENT TOXICITY [None]
